FAERS Safety Report 7563032-0 (Version None)
Quarter: 2011Q2

REPORT INFORMATION
  Report Type: 
  Country: None (occurrence: None)
  Receive Date: 20110622
  Receipt Date: 20110614
  Transmission Date: 20111010
  Serious: Yes (Hospitalization, Other)
  Sender: FDA-Public Use
  Company Number: US-ACTELION-A-US2011-47874

PATIENT

DRUGS (2)
  1. TRACLEER [Suspect]
     Indication: PULMONARY ARTERIAL HYPERTENSION
     Dosage: UNK
     Route: 048
     Dates: start: 20091104
  2. REVATIO [Concomitant]

REACTIONS (4)
  - DIALYSIS [None]
  - RENAL FAILURE [None]
  - PULMONARY OEDEMA [None]
  - CARDIAC FAILURE [None]
